FAERS Safety Report 4745832-5 (Version None)
Quarter: 2005Q3

REPORT INFORMATION
  Report Type: 
  Country: None (occurrence: None)
  Receive Date: 20050815
  Receipt Date: 20050815
  Transmission Date: 20060218
  Serious: Yes (Life-Threatening, Other)
  Sender: FDA-Public Use
  Company Number: None

PATIENT
  Sex: Female
  Weight: 47.6277 kg

DRUGS (2)
  1. ZOLOFT [Suspect]
     Indication: ANXIETY
     Dates: start: 20050202, end: 20050719
  2. ZOLOFT [Suspect]
     Indication: DEPRESSION
     Dates: start: 20050202, end: 20050719

REACTIONS (7)
  - ABNORMAL BEHAVIOUR [None]
  - AGGRESSION [None]
  - AMENORRHOEA [None]
  - EDUCATIONAL PROBLEM [None]
  - IMPULSIVE BEHAVIOUR [None]
  - INSOMNIA [None]
  - SELF INJURIOUS BEHAVIOUR [None]
